FAERS Safety Report 9330741 (Version 1)
Quarter: 2013Q2

REPORT INFORMATION
  Report Type: Spontaneous
  Country: NO (occurrence: NO)
  Receive Date: 20130605
  Receipt Date: 20130605
  Transmission Date: 20140414
  Serious: No
  Sender: FDA-Public Use
  Company Number: NO-JNJFOC-20130522024

PATIENT
  Age: 50 Year
  Sex: Female

DRUGS (2)
  1. DUROGESIC [Suspect]
     Indication: PROCEDURAL PAIN
     Route: 062
  2. IMOVANE [Concomitant]
     Indication: PRODUCT USED FOR UNKNOWN INDICATION
     Route: 065

REACTIONS (4)
  - Inappropriate schedule of drug administration [Unknown]
  - Product quality issue [Unknown]
  - Wrong technique in drug usage process [Unknown]
  - Off label use [Unknown]
